FAERS Safety Report 6710979-0 (Version None)
Quarter: 2010Q2

REPORT INFORMATION
  Report Type: 
  Country: None (occurrence: None)
  Receive Date: 20100505
  Receipt Date: 20100421
  Transmission Date: 20101027
  Serious: Yes (Hospitalization, Other)
  Sender: FDA-Public Use
  Company Number: IT-RANBAXY-2010RR-33519

PATIENT
  Age: 66 Year
  Sex: Female

DRUGS (5)
  1. DULOXETINE HYDROCHLORIDE [Suspect]
     Dosage: 60 MG, UNK
     Route: 048
  2. TRAZODONE HCL [Suspect]
     Dosage: 75 MG, UNK
     Route: 048
  3. VENLAFAXINE [Suspect]
     Route: 048
  4. SERTRALINE HCL [Suspect]
     Route: 048
  5. CLONAZEPAM [Suspect]
     Route: 048

REACTIONS (5)
  - DRUG INTERACTION [None]
  - HEART RATE DECREASED [None]
  - HYPOTENSION [None]
  - INTENTIONAL OVERDOSE [None]
  - MENTAL STATUS CHANGES [None]
